FAERS Safety Report 12681642 (Version 5)
Quarter: 2017Q4

REPORT INFORMATION
  Report Type: Report from Study
  Country: DE (occurrence: DE)
  Receive Date: 20160824
  Receipt Date: 20171116
  Transmission Date: 20180320
  Serious: Yes (Other)
  Sender: FDA-Public Use
  Company Number: DE-INCYTE CORPORATION-2016IN005155

PATIENT

DRUGS (2)
  1. JAKAVI [Suspect]
     Active Substance: RUXOLITINIB
     Indication: MYELOFIBROSIS
     Dosage: 15 MG, BID (30 MG QD) (2DF)
     Route: 048
     Dates: start: 20120901
  2. JAKAVI [Suspect]
     Active Substance: RUXOLITINIB
     Indication: MYELOFIBROSIS

REACTIONS (7)
  - Localised infection [Recovered/Resolved]
  - Second primary malignancy [Recovering/Resolving]
  - Basal cell carcinoma [Recovering/Resolving]
  - Localised infection [Recovered/Resolved]
  - Localised infection [Recovered/Resolved]
  - Bone pain [Unknown]
  - Neoplasm skin [Unknown]

NARRATIVE: CASE EVENT DATE: 20160301
